FAERS Safety Report 18528246 (Version 2)
Quarter: 2023Q1

REPORT INFORMATION
  Report Type: Spontaneous
  Country: US (occurrence: US)
  Receive Date: 20201120
  Receipt Date: 20230315
  Transmission Date: 20230417
  Serious: No
  Sender: FDA-Public Use
  Company Number: US-PFIZER INC-2020456753

PATIENT
  Age: 78 Year

DRUGS (1)
  1. DICLOFENAC EPOLAMINE [Suspect]
     Active Substance: DICLOFENAC EPOLAMINE
     Dosage: UNK

REACTIONS (3)
  - Drug ineffective [Unknown]
  - COVID-19 [Unknown]
  - Ageusia [Unknown]

NARRATIVE: CASE EVENT DATE: 20200101
